FAERS Safety Report 7899034-4 (Version None)
Quarter: 2011Q4

REPORT INFORMATION
  Report Type: 
  Country: None (occurrence: None)
  Receive Date: 20111107
  Receipt Date: 20111027
  Transmission Date: 20120403
  Serious: Yes (Hospitalization)
  Sender: FDA-Public Use
  Company Number: GB-ASTRAZENECA-2011SE60659

PATIENT
  Age: 55 Year
  Sex: Male

DRUGS (6)
  1. OMEPRAZOLE [Concomitant]
     Route: 048
     Dates: start: 20110701
  2. IRESSA [Suspect]
     Indication: NON-SMALL CELL LUNG CANCER
     Route: 048
     Dates: start: 20110905, end: 20110922
  3. DEXAMETHASONE [Concomitant]
     Indication: METASTASES TO CENTRAL NERVOUS SYSTEM
     Route: 048
     Dates: start: 20110701
  4. GREEN LEAF TEA [Concomitant]
     Dosage: A LOT
     Route: 048
     Dates: start: 20110701, end: 20111001
  5. IRESSA [Suspect]
     Route: 048
     Dates: start: 20111010
  6. DURAGESIC-100 [Concomitant]
     Indication: PAIN
     Route: 058
     Dates: start: 20110801

REACTIONS (4)
  - PULMONARY EMBOLISM [None]
  - TRANSAMINASES INCREASED [None]
  - LIVER FUNCTION TEST ABNORMAL [None]
  - ARRHYTHMIA [None]
